FAERS Safety Report 19680127 (Version 4)
Quarter: 2021Q3

REPORT INFORMATION
  Report Type: Spontaneous
  Country: US (occurrence: US)
  Receive Date: 20210810
  Receipt Date: 20210819
  Transmission Date: 20211014
  Serious: Yes (Hospitalization, Other)
  Sender: FDA-Public Use
  Company Number: US-PFIZER INC-202100957589

PATIENT
  Age: 13 Year
  Sex: Male
  Weight: 25 kg

DRUGS (51)
  1. SIROLIMUS. [Suspect]
     Active Substance: SIROLIMUS
     Dosage: 0.2 MG, 2X/DAY
     Dates: start: 20210310, end: 20210312
  2. TACROLIMUS. [Suspect]
     Active Substance: TACROLIMUS
     Dosage: 0.55 MG, SINGLE
     Dates: start: 20210420, end: 20210420
  3. TACROLIMUS. [Suspect]
     Active Substance: TACROLIMUS
     Dosage: 0.55 MG, 2X/DAY
     Dates: start: 20210421
  4. GABAPENTIN. [Concomitant]
     Active Substance: GABAPENTIN
     Dosage: UNK
  5. IMMUNOGLOBULIN HUMAN NORMAL [Concomitant]
     Active Substance: HUMAN IMMUNOGLOBULIN G
     Dosage: UNK
     Dates: start: 201208
  6. SIROLIMUS. [Suspect]
     Active Substance: SIROLIMUS
     Dosage: 0.12 MG, 2X/DAY
     Dates: start: 20210421, end: 20210426
  7. SULFAMETHOXAZOLE/TRIMETHOPRIM [Suspect]
     Active Substance: SULFAMETHOXAZOLE\TRIMETHOPRIM
     Indication: ANTIFUNGAL PROPHYLAXIS
     Dosage: 123.2 MG, 3X/DAY
     Dates: start: 20210309, end: 20210325
  8. SULFAMETHOXAZOLE/TRIMETHOPRIM [Suspect]
     Active Substance: SULFAMETHOXAZOLE\TRIMETHOPRIM
     Dosage: 124 MG, 3 TIMES A WEEK
  9. TACROLIMUS. [Suspect]
     Active Substance: TACROLIMUS
     Dosage: 0.6 MG, 2X/DAY
     Dates: start: 20210405, end: 20210407
  10. TACROLIMUS. [Suspect]
     Active Substance: TACROLIMUS
     Dosage: 0.7 MG, 2X/DAY
     Dates: start: 20210409, end: 20210419
  11. SIROLIMUS. [Suspect]
     Active Substance: SIROLIMUS
     Dosage: 0.1 MG
     Dates: start: 20210313, end: 20210319
  12. SIROLIMUS. [Suspect]
     Active Substance: SIROLIMUS
     Dosage: 0.15 MG, 2X/DAY
     Dates: start: 20210320, end: 20210419
  13. SIROLIMUS. [Suspect]
     Active Substance: SIROLIMUS
     Dosage: 0.12 MG, SINGLE
     Dates: start: 20210420, end: 20210420
  14. SIROLIMUS. [Suspect]
     Active Substance: SIROLIMUS
     Dosage: 0.1 MG, SINGLE
     Dates: start: 20210427, end: 20210427
  15. DIPHENHYDRAMINE. [Concomitant]
     Active Substance: DIPHENHYDRAMINE
     Dosage: UNK
  16. IBUPROFEN. [Concomitant]
     Active Substance: IBUPROFEN
     Dosage: UNK
  17. SIROLIMUS. [Suspect]
     Active Substance: SIROLIMUS
     Indication: IMMUNOSUPPRESSION
     Dosage: 0.92 MG, 3X/DAY
     Dates: start: 20210309, end: 20210309
  18. TACROLIMUS. [Suspect]
     Active Substance: TACROLIMUS
     Dosage: 0.8 MG, SINGLE
     Dates: start: 20210325, end: 20210325
  19. TACROLIMUS. [Suspect]
     Active Substance: TACROLIMUS
     Dosage: 0.7 MG, 2X/DAY
     Dates: start: 20210408, end: 20210408
  20. DEXAMETHASONE. [Suspect]
     Active Substance: DEXAMETHASONE
     Indication: ANAESTHESIA
     Dosage: 8 MG, SINGLE
     Route: 042
     Dates: start: 20210428, end: 20210428
  21. DEXAMETHASONE. [Suspect]
     Active Substance: DEXAMETHASONE
     Dosage: 2 MG, 4X/DAY
     Dates: start: 20210522
  22. EMLA [Concomitant]
     Active Substance: LIDOCAINE\PRILOCAINE
     Dosage: UNK
     Dates: start: 200902
  23. MENAQUINONE?7 [Concomitant]
     Dosage: UNK
     Dates: start: 2012
  24. SIROLIMUS. [Suspect]
     Active Substance: SIROLIMUS
     Dosage: 0.15 MG, SINGLE
     Dates: start: 20210420, end: 20210420
  25. TACROLIMUS. [Suspect]
     Active Substance: TACROLIMUS
     Dosage: 0.6 MG, SINGLE
     Dates: start: 20210408, end: 20210408
  26. FAMOTIDINE. [Concomitant]
     Active Substance: FAMOTIDINE
     Dosage: UNK
  27. OMEPRAZOLE. [Concomitant]
     Active Substance: OMEPRAZOLE
     Dosage: UNK
  28. MONTELUKAST SODIUM. [Concomitant]
     Active Substance: MONTELUKAST SODIUM
     Dosage: UNK
     Dates: start: 2017
  29. ACETAMINOPHEN. [Concomitant]
     Active Substance: ACETAMINOPHEN
     Dosage: UNK
     Dates: start: 2011
  30. IDURSULFASE [Concomitant]
     Active Substance: IDURSULFASE
     Dosage: UNK
     Dates: start: 2011
  31. SIROLIMUS. [Suspect]
     Active Substance: SIROLIMUS
     Dosage: 0.12 MG, SINGLE
     Dates: start: 20210427, end: 20210427
  32. SIROLIMUS. [Suspect]
     Active Substance: SIROLIMUS
     Dosage: 0.1 MG, 2X/DAY
     Dates: start: 20210428
  33. TACROLIMUS. [Suspect]
     Active Substance: TACROLIMUS
     Dosage: 1.25 MG, SINGLE
     Dates: start: 20210315, end: 20210315
  34. TACROLIMUS. [Suspect]
     Active Substance: TACROLIMUS
     Dosage: 0.8 MG, 2X/DAY
     Dates: start: 20210326, end: 20210404
  35. PREDNISOLONE SODIUM PHOSPHATE. [Suspect]
     Active Substance: PREDNISOLONE SODIUM PHOSPHATE
     Dosage: 8.7 MG, 4X/DAY
     Dates: start: 20210326, end: 20210408
  36. PREDNISOLONE SODIUM PHOSPHATE. [Suspect]
     Active Substance: PREDNISOLONE SODIUM PHOSPHATE
     Dosage: 4.8 MG, 4X/DAY
     Dates: start: 20210409, end: 20210517
  37. RIBOFLAVIN [Concomitant]
     Active Substance: RIBOFLAVIN
     Dosage: UNK
     Dates: start: 2014
  38. HEPARIN [Concomitant]
     Active Substance: HEPARIN SODIUM
     Dosage: UNK
     Dates: start: 2011
  39. TACROLIMUS. [Suspect]
     Active Substance: TACROLIMUS
     Indication: IMMUNOSUPPRESSION
     Dosage: 1.25 MG, 2X/DAY
     Dates: start: 20210312, end: 20210314
  40. TACROLIMUS. [Suspect]
     Active Substance: TACROLIMUS
     Dosage: 1 MG, SINGLE
     Dates: start: 20210325, end: 20210325
  41. TACROLIMUS. [Suspect]
     Active Substance: TACROLIMUS
     Dosage: 0.7 MG, SINGLE
     Dates: start: 20210420, end: 20210420
  42. PREDNISOLONE SODIUM PHOSPHATE. [Suspect]
     Active Substance: PREDNISOLONE SODIUM PHOSPHATE
     Indication: IMMUNOSUPPRESSION
     Dosage: 12.3 MG, 4X/DAY
     Dates: start: 20210312, end: 20210325
  43. DEXAMETHASONE. [Suspect]
     Active Substance: DEXAMETHASONE
     Dosage: 18 MG, SINGLE
     Route: 042
     Dates: start: 20210512, end: 20210512
  44. POTASSIUM CHLORIDE. [Concomitant]
     Active Substance: POTASSIUM CHLORIDE
     Dosage: UNK
     Dates: start: 2012
  45. COLECALCIFEROL [Concomitant]
     Active Substance: CHOLECALCIFEROL
     Dosage: UNK
     Dates: start: 2012
  46. TACROLIMUS. [Suspect]
     Active Substance: TACROLIMUS
     Dosage: 1 MG, SINGLE
     Dates: start: 20210315, end: 20210315
  47. TACROLIMUS. [Suspect]
     Active Substance: TACROLIMUS
     Dosage: 1 MG, 2X/DAY
     Dates: start: 20210316, end: 20210324
  48. PREDNISOLONE SODIUM PHOSPHATE. [Suspect]
     Active Substance: PREDNISOLONE SODIUM PHOSPHATE
     Dosage: 13.5 MG, 4X/DAY
     Dates: start: 20210518, end: 20210521
  49. DEXAMETHASONE. [Suspect]
     Active Substance: DEXAMETHASONE
     Indication: ORAL CANDIDIASIS
     Dosage: 1 SWAB APPLICATION, 4X/DAY
     Route: 048
     Dates: start: 20210420, end: 20210505
  50. UBIDECARENONE. [Concomitant]
     Active Substance: UBIDECARENONE
     Dosage: UNK
  51. LACTOBACILLUS ACIDOPHILUS [Concomitant]
     Active Substance: LACTOBACILLUS ACIDOPHILUS
     Dosage: UNK
     Dates: start: 20091119

REACTIONS (8)
  - Abdominal pain [Unknown]
  - VIIth nerve injury [Unknown]
  - Stomatitis [Unknown]
  - Myoclonus [Unknown]
  - Oral candidiasis [Unknown]
  - Somnolence [Unknown]
  - Dysphagia [Unknown]
  - Periorbital oedema [Unknown]

NARRATIVE: CASE EVENT DATE: 20210406
